FAERS Safety Report 10984354 (Version 1)
Quarter: 2015Q2

REPORT INFORMATION
  Report Type: Report from Study
  Country: CH (occurrence: CH)
  Receive Date: 20150403
  Receipt Date: 20150403
  Transmission Date: 20150821
  Serious: Yes (Death, Other)
  Sender: FDA-Public Use
  Company Number: CH-PFIZER INC-2015027531

PATIENT
  Age: 84 Year
  Sex: Female

DRUGS (6)
  1. TORASEMIDE [Suspect]
     Active Substance: TORSEMIDE
     Dosage: UNK
  2. METHOTREXATE SODIUM. [Suspect]
     Active Substance: METHOTREXATE SODIUM
     Dosage: 7.5 MG, WEEKLY
  3. MOXIFLOXACIN [Suspect]
     Active Substance: MOXIFLOXACIN
     Dosage: UNK
  4. ALLOPURINOL. [Suspect]
     Active Substance: ALLOPURINOL
     Dosage: UNK
  5. DIPYRONE [Suspect]
     Active Substance: DIPYRONE
     Indication: ARTHRALGIA
     Dosage: 2000 MG, DAILY
     Route: 048
  6. SPIRONOLACTONE. [Suspect]
     Active Substance: SPIRONOLACTONE
     Dosage: UNK

REACTIONS (2)
  - Pancytopenia [Fatal]
  - Multi-organ failure [Fatal]

NARRATIVE: CASE EVENT DATE: 2012
